FAERS Safety Report 14922830 (Version 1)
Quarter: 2018Q2

REPORT INFORMATION
  Report Type: Spontaneous
  Country: JP (occurrence: JP)
  Receive Date: 20180522
  Receipt Date: 20180522
  Transmission Date: 20180711
  Serious: Yes (Hospitalization)
  Sender: FDA-Public Use
  Company Number: JP-MYLANLABS-2018M1032804

PATIENT
  Age: 65 Year
  Sex: Female
  Weight: 42 kg

DRUGS (6)
  1. CARBOPLATIN. [Suspect]
     Active Substance: CARBOPLATIN
     Indication: OVARIAN CANCER
     Dosage: 443.3 MG, UNK
     Route: 042
     Dates: start: 20171128, end: 20180424
  2. AVELUMAB [Concomitant]
     Active Substance: AVELUMAB
     Indication: OVARIAN CANCER
     Dosage: 392 MG, CYCLE
     Route: 042
     Dates: start: 20171116, end: 20180424
  3. PACLITAXEL. [Concomitant]
     Active Substance: PACLITAXEL
     Indication: OVARIAN CANCER
     Dosage: 228.7 MG, CYCLE
     Route: 042
     Dates: start: 20171128, end: 20180424
  4. MAGNESIUM OXIDE. [Concomitant]
     Active Substance: MAGNESIUM OXIDE
     Indication: CONSTIPATION
     Dosage: ??
     Route: 065
     Dates: start: 20171116
  5. BROTIZOLAM [Concomitant]
     Active Substance: BROTIZOLAM
     Indication: INSOMNIA
     Dosage: ??
     Route: 065
     Dates: start: 20171124
  6. OLANZAPINE FINE GRANULES 1??PFIZER? [Concomitant]
     Indication: PROPHYLAXIS OF NAUSEA AND VOMITING
     Dosage: ??
     Route: 065
     Dates: start: 20180423, end: 20180428

REACTIONS (4)
  - Neutrophil count decreased [Unknown]
  - Pyrexia [Recovered/Resolved]
  - C-reactive protein increased [Unknown]
  - Cough [Unknown]

NARRATIVE: CASE EVENT DATE: 20180506
